FAERS Safety Report 8991232 (Version 1)
Quarter: 2012Q4

REPORT INFORMATION
  Report Type: Report from Study
  Country: CA (occurrence: CA)
  Receive Date: 20121231
  Receipt Date: 20121231
  Transmission Date: 20130627
  Serious: Yes (Other)
  Sender: FDA-Public Use
  Company Number: CA-ROCHE-1166789

PATIENT
  Sex: Female
  Weight: 61 kg

DRUGS (5)
  1. OMALIZUMAB [Suspect]
     Indication: ASTHMA
     Route: 058
     Dates: start: 20051020
  2. SYMBICORT [Concomitant]
     Dosage: 1 puff
     Route: 065
  3. SYMBICORT [Concomitant]
     Dosage: 2 puffs daily
     Route: 065
  4. VENTOLIN [Concomitant]
     Route: 065
  5. VENTOLIN [Concomitant]
     Dosage: 2-3 times per day
     Route: 065

REACTIONS (7)
  - Pneumonia [Recovered/Resolved]
  - Lower respiratory tract infection [Unknown]
  - Asthma [Unknown]
  - Wheezing [Unknown]
  - Asthenia [Unknown]
  - Fatigue [Unknown]
  - Dyspnoea [Unknown]
